FAERS Safety Report 12100566 (Version 1)
Quarter: 2016Q1

REPORT INFORMATION
  Report Type: Spontaneous
  Country: AR (occurrence: AR)
  Receive Date: 20160222
  Receipt Date: 20160222
  Transmission Date: 20160526
  Serious: Yes (Other)
  Sender: FDA-Public Use
  Company Number: CHPA2016AR002115

PATIENT
  Age: 52 Year
  Sex: Female

DRUGS (1)
  1. OTRIVINA [Suspect]
     Active Substance: XYLOMETAZOLINE
     Indication: RHINITIS ALLERGIC
     Dosage: UNK
     Route: 065
     Dates: start: 1987

REACTIONS (2)
  - Thrombosis [Recovered/Resolved]
  - Antiphospholipid syndrome [Unknown]

NARRATIVE: CASE EVENT DATE: 1999
